FAERS Safety Report 4355367-X (Version None)
Quarter: 2004Q2

REPORT INFORMATION
  Report Type: 
  Country: None (occurrence: None)
  Receive Date: 20040504
  Receipt Date: 20040429
  Transmission Date: 20050107
  Serious: Yes (Hospitalization)
  Sender: FDA-Public Use
  Company Number: FR-JNJFOC-20040405943

PATIENT
  Age: 54 Year
  Sex: Female

DRUGS (7)
  1. RISPERDAL CONSTA [Suspect]
     Indication: DRUG USE FOR UNKNOWN INDICATION
     Dosage: 50 MG, 1 IN 2 WEEK, INTRA-MUSCULAR
     Route: 030
     Dates: start: 20040413
  2. RISPERDAL [Suspect]
     Indication: DRUG USE FOR UNKNOWN INDICATION
     Dosage: 6 MG,  IN 1 DAY, ORAL;  8 MG,  IN 1 DAY, ORAL; 10 MG,  IN 1 DAY, ORAL;  12 MG,   IN 1 DAY, ORAL
     Route: 048
     Dates: start: 20040319, end: 20040325
  3. RISPERDAL [Suspect]
     Indication: DRUG USE FOR UNKNOWN INDICATION
     Dosage: 6 MG,  IN 1 DAY, ORAL;  8 MG,  IN 1 DAY, ORAL; 10 MG,  IN 1 DAY, ORAL;  12 MG,   IN 1 DAY, ORAL
     Route: 048
     Dates: start: 20040326, end: 20040328
  4. RISPERDAL [Suspect]
     Indication: DRUG USE FOR UNKNOWN INDICATION
     Dosage: 6 MG,  IN 1 DAY, ORAL;  8 MG,  IN 1 DAY, ORAL; 10 MG,  IN 1 DAY, ORAL;  12 MG,   IN 1 DAY, ORAL
     Route: 048
     Dates: start: 20040329, end: 20040331
  5. RISPERDAL [Suspect]
     Indication: DRUG USE FOR UNKNOWN INDICATION
     Dosage: 6 MG,  IN 1 DAY, ORAL;  8 MG,  IN 1 DAY, ORAL; 10 MG,  IN 1 DAY, ORAL;  12 MG,   IN 1 DAY, ORAL
     Route: 048
     Dates: start: 20040401
  6. LEPTICUR (TROPATEPINE HYDROCHLORIDE) [Concomitant]
  7. VALIUM [Concomitant]

REACTIONS (2)
  - DRUG INTERACTION [None]
  - ELECTROCARDIOGRAM QT PROLONGED [None]
